FAERS Safety Report 4313952-5 (Version None)
Quarter: 2004Q1

REPORT INFORMATION
  Report Type: 
  Country: None (occurrence: None)
  Receive Date: 20040305
  Receipt Date: 20040301
  Transmission Date: 20041129
  Serious: Yes (Hospitalization)
  Sender: FDA-Public Use
  Company Number: THQ2004A00243

PATIENT
  Age: 62 Year
  Sex: 0

DRUGS (3)
  1. LANSOPRAZOLE [Suspect]
     Indication: GASTRIC ULCER
     Dosage: 30 MG PER ORAL
     Route: 048
     Dates: start: 20040112, end: 20040210
  2. GLICLAZIDE (GLICLAZIDE) [Concomitant]
  3. METFORMIN HCL [Concomitant]

REACTIONS (3)
  - CONVULSION [None]
  - FATIGUE [None]
  - MYOCLONUS [None]
